FAERS Safety Report 10378731 (Version 3)
Quarter: 2015Q1

REPORT INFORMATION
  Report Type: Spontaneous
  Country: JP (occurrence: JP)
  Receive Date: 20140812
  Receipt Date: 20150112
  Transmission Date: 20150720
  Serious: Yes (Hospitalization, Other)
  Sender: FDA-Public Use
  Company Number: JP-DSJP-DSJ-2014-117555

PATIENT

DRUGS (2)
  1. FEBUXOSTAT. [Suspect]
     Active Substance: FEBUXOSTAT
     Dosage: 20 MG, QD
     Route: 065
  2. OLMETEC TABLETS 20MG [Suspect]
     Active Substance: OLMESARTAN MEDOXOMIL
     Indication: PRODUCT USED FOR UNKNOWN INDICATION
     Dosage: 20 MG, QD
     Route: 065

REACTIONS (9)
  - Hypotension [Recovering/Resolving]
  - Pyrexia [Recovering/Resolving]
  - Liver disorder [Recovering/Resolving]
  - Renal disorder [Recovering/Resolving]
  - Viral infection [None]
  - Acute kidney injury [None]
  - Metabolic acidosis [Recovering/Resolving]
  - Hepatic encephalopathy [Recovering/Resolving]
  - Urinary tract infection [None]
